FAERS Safety Report 7793103-5 (Version None)
Quarter: 2011Q3

REPORT INFORMATION
  Report Type: 
  Country: None (occurrence: None)
  Receive Date: 20110930
  Receipt Date: 20110930
  Transmission Date: 20111222
  Serious: No
  Sender: FDA-Public Use
  Company Number: None

PATIENT
  Sex: Female
  Weight: 56.6996 kg

DRUGS (3)
  1. METAXALONE [Suspect]
     Indication: KNEE OPERATION
     Dosage: TAB/DAY 3 TIMES A DAY BY MOUTH
     Route: 048
     Dates: start: 20110801, end: 20110808
  2. METAXALONE [Suspect]
     Indication: IMPLANT SITE PAIN
     Dosage: TAB/DAY 3 TIMES A DAY BY MOUTH
     Route: 048
     Dates: start: 20110801, end: 20110808
  3. METAXALONE [Suspect]
     Indication: MUSCLE RELAXANT THERAPY
     Dosage: TAB/DAY 3 TIMES A DAY BY MOUTH
     Route: 048
     Dates: start: 20110801, end: 20110808

REACTIONS (3)
  - SOMNOLENCE [None]
  - DIZZINESS [None]
  - RASH [None]
